FAERS Safety Report 4898878-0 (Version None)
Quarter: 2006Q1

REPORT INFORMATION
  Report Type: 
  Country: None (occurrence: None)
  Receive Date: 20060104
  Receipt Date: 20051012
  Transmission Date: 20060701
  Serious: Yes (Hospitalization)
  Sender: FDA-Public Use
  Company Number: A03200503259

PATIENT
  Sex: Male

DRUGS (3)
  1. ELOXATIN [Suspect]
     Dosage: INTRAVENOUS NOS
     Route: 042
     Dates: start: 20051010, end: 20051010
  2. CAPECITABINE [Concomitant]
  3. BEVACIZUMAB [Concomitant]

REACTIONS (1)
  - THROMBOCYTOPENIA [None]
